FAERS Safety Report 9406814 (Version 2)
Quarter: 2013Q3

REPORT INFORMATION
  Report Type: Spontaneous
  Country: IT (occurrence: IT)
  Receive Date: 20130718
  Receipt Date: 20130913
  Transmission Date: 20140515
  Serious: Yes (Hospitalization)
  Sender: FDA-Public Use
  Company Number: PHHY2013IT074484

PATIENT
  Age: 60 Year
  Sex: Male

DRUGS (4)
  1. CLOZAPINE [Suspect]
     Indication: DRUG ABUSE
     Dosage: 400 MG, UNK (TOT)
     Route: 048
     Dates: start: 20130622, end: 20130622
  2. AVODART [Concomitant]
     Dosage: UNK (1 TABLET)
     Route: 048
  3. OMNIC [Concomitant]
     Dosage: UNK (1 TABLET)
  4. CLOTIAPINE [Concomitant]
     Dosage: UNK

REACTIONS (1)
  - Sopor [Unknown]
